FAERS Safety Report 21319144 (Version 1)
Quarter: 2022Q3

REPORT INFORMATION
  Report Type: Spontaneous
  Country: US (occurrence: US)
  Receive Date: 20220911
  Receipt Date: 20220911
  Transmission Date: 20221027
  Serious: No
  Sender: FDA-Public Use
  Company Number: US-SA-SAC20220906000376

PATIENT
  Sex: Female

DRUGS (3)
  1. DUPIXENT [Suspect]
     Active Substance: DUPILUMAB
     Indication: Dermatitis atopic
     Dosage: 300 MG, QOW
     Route: 058
     Dates: start: 20210910
  2. XELJANZ [Concomitant]
     Active Substance: TOFACITINIB CITRATE
  3. CETAPHIL GENTLE SKIN CLEANSER [CETYL ALCOHOL;PROPYLENE GLYCOL;SODIUM L [Concomitant]
     Dosage: UNK

REACTIONS (5)
  - Asthma [Unknown]
  - Impaired quality of life [Unknown]
  - Urticaria [Unknown]
  - Drug ineffective [Unknown]
  - Product dose omission in error [Unknown]
